FAERS Safety Report 6225537-4 (Version None)
Quarter: 2009Q2

REPORT INFORMATION
  Report Type: 
  Country: None (occurrence: None)
  Receive Date: 20090612
  Receipt Date: 20090422
  Transmission Date: 20091009
  Serious: No
  Sender: FDA-Public Use
  Company Number: US-ABBOTT-09P-163-0569520-00

PATIENT
  Sex: Female
  Weight: 72.64 kg

DRUGS (12)
  1. HUMIRA [Suspect]
     Indication: PSORIATIC ARTHROPATHY
     Route: 058
     Dates: start: 20070101
  2. METHOTREXATE [Concomitant]
     Indication: PSORIATIC ARTHROPATHY
  3. ARAVA [Concomitant]
     Indication: PSORIATIC ARTHROPATHY
  4. NEURONTIN [Concomitant]
     Indication: BACK PAIN
  5. NORCO [Concomitant]
     Indication: PAIN
  6. HYDROCODONE BITARTRATE [Concomitant]
     Indication: PAIN
  7. DURAGESIC-100 [Concomitant]
     Indication: PAIN
  8. CYCLOBENZAPRINE [Concomitant]
     Indication: PAIN
  9. PRILOSEC [Concomitant]
     Indication: PROPHYLAXIS AGAINST GASTROINTESTINAL ULCER
  10. CALCIUM [Concomitant]
     Indication: DRUG USE FOR UNKNOWN INDICATION
  11. FOLIC ACID [Concomitant]
     Indication: DRUG USE FOR UNKNOWN INDICATION
  12. VITAMIN D [Concomitant]
     Indication: DRUG USE FOR UNKNOWN INDICATION

REACTIONS (1)
  - TOOTH FRACTURE [None]
